FAERS Safety Report 18454512 (Version 1)
Quarter: 2020Q4

REPORT INFORMATION
  Report Type: Report from Study
  Country: CA (occurrence: CA)
  Receive Date: 20201102
  Receipt Date: 20201102
  Transmission Date: 20210114
  Serious: Yes (Other)
  Sender: FDA-Public Use
  Company Number: PHHY2018CA186612

PATIENT
  Age: 72 Year
  Sex: Male

DRUGS (5)
  1. IBUPROFEN. [Concomitant]
     Active Substance: IBUPROFEN
     Indication: PRODUCT USED FOR UNKNOWN INDICATION
     Dosage: 600 MG, PRN
     Route: 048
     Dates: start: 2016
  2. COSENTYX [Suspect]
     Active Substance: SECUKINUMAB
     Dosage: 150 MG, QMO
     Route: 058
     Dates: start: 201811
  3. COSENTYX [Suspect]
     Active Substance: SECUKINUMAB
     Indication: ANKYLOSING SPONDYLITIS
     Dosage: 150 MG, QMO
     Route: 058
     Dates: start: 20181011
  4. COSENTYX [Suspect]
     Active Substance: SECUKINUMAB
     Dosage: 150 MG, Q3W
     Route: 058
  5. CEPHALEXIN. [Concomitant]
     Active Substance: CEPHALEXIN
     Indication: PRODUCT USED FOR UNKNOWN INDICATION
     Dosage: 500 MG, UNKNOWN
     Route: 065
     Dates: start: 20181208

REACTIONS (19)
  - Joint dislocation [Unknown]
  - Inappropriate schedule of product administration [Unknown]
  - Arthralgia [Recovered/Resolved]
  - Accidental exposure to product [Unknown]
  - Pain [Recovered/Resolved]
  - Limb injury [Unknown]
  - Joint swelling [Recovered/Resolved]
  - Musculoskeletal stiffness [Unknown]
  - Peripheral swelling [Unknown]
  - Therapeutic product effect decreased [Unknown]
  - Gait disturbance [Recovering/Resolving]
  - Incorrect dose administered [Unknown]
  - Pain in extremity [Unknown]
  - Erythema [Recovered/Resolved]
  - Back pain [Unknown]
  - Device issue [Unknown]
  - Arthritis infective [Recovered/Resolved]
  - Fall [Unknown]
  - Skin abrasion [Unknown]

NARRATIVE: CASE EVENT DATE: 20181206
